FAERS Safety Report 23289568 (Version 2)
Quarter: 2024Q1

REPORT INFORMATION
  Report Type: Spontaneous
  Country: US (occurrence: US)
  Receive Date: 20231212
  Receipt Date: 20240102
  Transmission Date: 20240410
  Serious: No
  Sender: FDA-Public Use
  Company Number: US-ALKERMES INC.-ALK-2023-004575

PATIENT
  Sex: Female

DRUGS (5)
  1. VIVITROL [Suspect]
     Active Substance: NALTREXONE
     Indication: Alcoholism
     Dosage: 380 MILLIGRAM, Q28D
     Route: 030
     Dates: start: 202309
  2. VIVITROL [Suspect]
     Active Substance: NALTREXONE
     Indication: Sleep apnoea syndrome
  3. VIVITROL [Suspect]
     Active Substance: NALTREXONE
     Indication: Venous hypertension
  4. VIVITROL [Suspect]
     Active Substance: NALTREXONE
     Indication: Varicose vein
  5. VIVITROL [Suspect]
     Active Substance: NALTREXONE
     Indication: Peripheral venous disease

REACTIONS (4)
  - Off label use [Not Recovered/Not Resolved]
  - Rhinorrhoea [Unknown]
  - Headache [Unknown]
  - Pain in extremity [Unknown]

NARRATIVE: CASE EVENT DATE: 20230101
